FAERS Safety Report 14074731 (Version 3)
Quarter: 2017Q4

REPORT INFORMATION
  Report Type: Spontaneous
  Country: US (occurrence: US)
  Receive Date: 20171010
  Receipt Date: 20171228
  Transmission Date: 20180321
  Serious: Yes (Other)
  Sender: FDA-Public Use
  Company Number: US-BAYER-2017-189044

PATIENT
  Age: 20 Year
  Sex: Female

DRUGS (1)
  1. KYLEENA [Suspect]
     Active Substance: LEVONORGESTREL
     Indication: CONTRACEPTION
     Dosage: 17.5 MCG/24HR, CONT
     Route: 015
     Dates: start: 20170817, end: 20170928

REACTIONS (8)
  - Genital haemorrhage [Recovered/Resolved]
  - Procedural pain [None]
  - Device expulsion [None]
  - Post procedural discomfort [None]
  - Multiple use of single-use product [None]
  - Chest pain [None]
  - Vaginal haemorrhage [None]
  - Dyspnoea [None]

NARRATIVE: CASE EVENT DATE: 2017
